FAERS Safety Report 5880088-1 (Version None)
Quarter: 2008Q3

REPORT INFORMATION
  Report Type: 
  Country: None (occurrence: None)
  Receive Date: 20080912
  Receipt Date: 20080905
  Transmission Date: 20090109
  Serious: No
  Sender: FDA-Public Use
  Company Number: US-AVENTIS-200815939US

PATIENT
  Sex: Female

DRUGS (1)
  1. OPTICLIK (INSULIN INJECTION PEN) [Suspect]

REACTIONS (1)
  - DEVICE MALFUNCTION [None]
